FAERS Safety Report 7015344-7 (Version None)
Quarter: 2010Q3

REPORT INFORMATION
  Report Type: 
  Country: None (occurrence: None)
  Receive Date: 20100922
  Receipt Date: 20100909
  Transmission Date: 20110219
  Serious: Yes (Other)
  Sender: FDA-Public Use
  Company Number: 018550

PATIENT
  Sex: Female
  Weight: 83 kg

DRUGS (4)
  1. CERTOLIZUMAB PEGOL [Suspect]
     Indication: RHEUMATOID ARTHRITIS
     Dosage: SEE IMAG
     Route: 058
     Dates: start: 20081106, end: 20081203
  2. CERTOLIZUMAB PEGOL [Suspect]
     Indication: RHEUMATOID ARTHRITIS
     Dosage: SEE IMAG
     Route: 058
     Dates: start: 20081215, end: 20090319
  3. CERTOLIZUMAB PEGOL [Suspect]
     Indication: RHEUMATOID ARTHRITIS
     Dosage: SEE IMAG
     Route: 058
     Dates: start: 20090420
  4. MULTI-VITAMINS [Concomitant]

REACTIONS (7)
  - ARTHROPOD BITE [None]
  - BLOOD GLUCOSE INCREASED [None]
  - BLOOD UREA DECREASED [None]
  - CELLULITIS [None]
  - DEHYDRATION [None]
  - HYPONATRAEMIA [None]
  - URINARY TRACT INFECTION [None]
